FAERS Safety Report 4849666-2 (Version None)
Quarter: 2005Q4

REPORT INFORMATION
  Report Type: 
  Country: None (occurrence: None)
  Receive Date: 20051207
  Receipt Date: 20051122
  Transmission Date: 20060501
  Serious: Yes (Hospitalization)
  Sender: FDA-Public Use
  Company Number: IMP_1943_2005

PATIENT
  Age: 28 Year
  Sex: Male

DRUGS (1)
  1. MINOCYCLINE HCL [Suspect]
     Indication: ACNE
     Dosage: 100 MG QDAY PO
     Route: 048

REACTIONS (11)
  - ANTIBODY TEST ABNORMAL [None]
  - BIOPSY LUNG ABNORMAL [None]
  - CRYPTOGENIC ORGANIZING PNEUMONIA [None]
  - DRUG ABUSER [None]
  - DRUG HYPERSENSITIVITY [None]
  - HALLUCINATION [None]
  - HEPATITIS [None]
  - INTERSTITIAL LUNG DISEASE [None]
  - ORTHOPNOEA [None]
  - SPLENOMEGALY [None]
  - WEIGHT DECREASED [None]
